FAERS Safety Report 18235527 (Version 1)
Quarter: 2020Q3

REPORT INFORMATION
  Report Type: Spontaneous
  Country: FR (occurrence: FR)
  Receive Date: 20200905
  Receipt Date: 20200905
  Transmission Date: 20201103
  Serious: Yes (Death)
  Sender: FDA-Public Use
  Company Number: FR-TEVA-2020-FR-1824269

PATIENT
  Age: 71 Year
  Sex: Male

DRUGS (5)
  1. MONTELUKAST SODIQUE [Interacting]
     Active Substance: MONTELUKAST SODIUM
     Route: 048
  2. ZOLPIDEM [Suspect]
     Active Substance: ZOLPIDEM TARTRATE
     Route: 048
  3. RUPATADINE ARROW 10 MG, COMPRIME [Interacting]
     Active Substance: RUPATADINE FUMARATE
     Indication: RHINITIS ALLERGIC
     Dosage: 1 DOSAGE FORMS
     Route: 048
     Dates: start: 20200525, end: 20200528
  4. TAMSULOSINE [Interacting]
     Active Substance: TAMSULOSIN HYDROCHLORIDE
     Route: 048
  5. LORAZEPAM. [Interacting]
     Active Substance: LORAZEPAM
     Route: 048

REACTIONS (2)
  - Death [Fatal]
  - Drug interaction [Unknown]

NARRATIVE: CASE EVENT DATE: 20200528
